FAERS Safety Report 9916705 (Version 1)
Quarter: 2014Q1

REPORT INFORMATION
  Report Type: Spontaneous
  Country: US (occurrence: US)
  Receive Date: 20140221
  Receipt Date: 20140221
  Transmission Date: 20141002
  Serious: Yes (Other)
  Sender: FDA-Public Use
  Company Number: US-PFIZER INC-2014047293

PATIENT
  Age: 68 Year
  Sex: Female
  Weight: 69.84 kg

DRUGS (3)
  1. ADVIL [Suspect]
     Indication: PAIN
     Dosage: 200 MG, TWO TIMES A DAY
     Route: 048
     Dates: start: 20140216
  2. SYNTHROID [Concomitant]
     Indication: HYPERTHYROIDISM
     Dosage: 50 MCG, DAILY
  3. ASPIRIN [Concomitant]
     Indication: CARDIAC DISORDER
     Dosage: 81 MG, UNK

REACTIONS (1)
  - Blood pressure increased [Unknown]
